FAERS Safety Report 18460371 (Version 1)
Quarter: 2020Q4

REPORT INFORMATION
  Report Type: Report from Study
  Country: ER (occurrence: ER)
  Receive Date: 20201104
  Receipt Date: 20201104
  Transmission Date: 20210114
  Serious: Yes (Hospitalization, Other)
  Sender: FDA-Public Use
  Company Number: ER-SA-2020SA303234

PATIENT

DRUGS (2)
  1. RANITIDINE HYDROCHLORIDE. [Suspect]
     Active Substance: RANITIDINE HYDROCHLORIDE
     Indication: PEPTIC ULCER
     Dosage: 50 MG (DILUTED IN 10 ML)
     Route: 040
  2. RANITIDINE HYDROCHLORIDE. [Suspect]
     Active Substance: RANITIDINE HYDROCHLORIDE
     Dosage: 50 MG (DILUTED IN 10 ML)
     Route: 042

REACTIONS (3)
  - Incorrect drug administration rate [Recovered/Resolved]
  - Cardiac arrest [Recovered/Resolved]
  - Product preparation issue [Recovered/Resolved]
